FAERS Safety Report 14320231 (Version 1)
Quarter: 2017Q4

REPORT INFORMATION
  Report Type: Spontaneous
  Country: US (occurrence: US)
  Receive Date: 20171222
  Receipt Date: 20171222
  Transmission Date: 20180321
  Serious: Yes (Life-Threatening, Hospitalization)
  Sender: FDA-Public Use
  Company Number: None

PATIENT
  Age: 75 Year
  Sex: Female

DRUGS (1)
  1. MODAFINIL. [Suspect]
     Active Substance: MODAFINIL

REACTIONS (5)
  - Drug ineffective [None]
  - Accident [None]
  - Somnolence [None]
  - Somnambulism [None]
  - Product substitution issue [None]

NARRATIVE: CASE EVENT DATE: 20171219
